FAERS Safety Report 4972920-0 (Version None)
Quarter: 2006Q2

REPORT INFORMATION
  Report Type: 
  Country: None (occurrence: None)
  Receive Date: 20060414
  Receipt Date: 20060405
  Transmission Date: 20061013
  Serious: Yes (Hospitalization, Other)
  Sender: FDA-Public Use
  Company Number: US-AVENTIS-200613235US

PATIENT
  Sex: Female

DRUGS (6)
  1. KETEK [Suspect]
     Indication: UPPER RESPIRATORY TRACT INFECTION
     Dosage: DOSE: UNKNOWN
     Dates: start: 20060101, end: 20060101
  2. COUMADIN [Concomitant]
     Dosage: DOSE: UNKNOWN
  3. CARDIZEM [Concomitant]
     Dosage: DOSE: UNKNOWN
  4. TOPROL-XL [Concomitant]
     Dosage: DOSE: UNKNOWN
  5. LASIX [Concomitant]
     Dosage: DOSE: UNKNOWN
  6. PROTONIX [Concomitant]
     Dosage: DOSE: UNKNOWN

REACTIONS (8)
  - ABDOMINAL PAIN [None]
  - ASPARTATE AMINOTRANSFERASE INCREASED [None]
  - ATRIAL FIBRILLATION [None]
  - FLANK PAIN [None]
  - HAEMATURIA [None]
  - LIVER FUNCTION TEST ABNORMAL [None]
  - RENAL HAEMORRHAGE [None]
  - RENAL PAPILLARY NECROSIS [None]
